FAERS Safety Report 8875864 (Version 2)
Quarter: 2012Q4

REPORT INFORMATION
  Report Type: 
  Country: US (occurrence: US)
  Receive Date: 20121023
  Receipt Date: 20121206
  Transmission Date: 20130627
  Serious: Yes (Hospitalization, Other)
  Sender: FDA-Public Use
  Company Number: US-ELI_LILLY_AND_COMPANY-US201210004598

PATIENT
  Age: 67 Year
  Sex: Male
  Weight: 76.64 kg

DRUGS (9)
  1. EFFIENT [Suspect]
     Indication: STENT PLACEMENT
     Dosage: 10 mg, qd
     Route: 065
     Dates: start: 20120903
  2. ASPIRIN [Concomitant]
  3. CRESTOR [Concomitant]
  4. LISINOPRIL [Concomitant]
  5. LOPRESSOR [Concomitant]
  6. LOSARTAN [Concomitant]
  7. NORVASC [Concomitant]
  8. ALDACTONE [Concomitant]
  9. PEPCID [Concomitant]

REACTIONS (12)
  - Cerebrovascular accident [Recovering/Resolving]
  - Subarachnoid haemorrhage [Recovering/Resolving]
  - Convulsion [Unknown]
  - Stent placement [Unknown]
  - Fall [Unknown]
  - Head injury [Unknown]
  - Cerebral calcification [Unknown]
  - Hypertension [Unknown]
  - Visual field defect [Unknown]
  - Myositis [Unknown]
  - Contusion [Unknown]
  - Asthenia [Unknown]
